FAERS Safety Report 8337754-8 (Version None)
Quarter: 2012Q2

REPORT INFORMATION
  Report Type: 
  Country: None (occurrence: None)
  Receive Date: 20120504
  Receipt Date: 20120426
  Transmission Date: 20120825
  Serious: Yes (Hospitalization)
  Sender: FDA-Public Use
  Company Number: US-GLAXOSMITHKLINE-A0747592A

PATIENT
  Age: 49 Year
  Sex: Male
  Weight: 106.8 kg

DRUGS (2)
  1. AVANDIA [Suspect]
     Indication: TYPE 2 DIABETES MELLITUS
     Dosage: 4MG PER DAY
     Route: 048
     Dates: start: 20030101, end: 20070401
  2. AVANDAMET [Suspect]
     Indication: TYPE 2 DIABETES MELLITUS
     Route: 048
     Dates: start: 20030101, end: 20070401

REACTIONS (4)
  - DIZZINESS [None]
  - DYSPNOEA [None]
  - CHEST PAIN [None]
  - MYOCARDIAL INFARCTION [None]
